FAERS Safety Report 6137179-X (Version None)
Quarter: 2009Q1

REPORT INFORMATION
  Report Type: 
  Country: None (occurrence: None)
  Receive Date: 20090330
  Receipt Date: 20090317
  Transmission Date: 20090719
  Serious: Yes (Hospitalization)
  Sender: FDA-Public Use
  Company Number: US-ELI_LILLY_AND_COMPANY-US200902002677

PATIENT
  Sex: Female
  Weight: 72.562 kg

DRUGS (12)
  1. ZYPREXA [Suspect]
     Indication: BIPOLAR DISORDER
     Dosage: 2.5 MG, UNK
     Dates: start: 20000101
  2. ZYPREXA [Suspect]
     Dosage: 40 MG, UNK
  3. ZYPREXA [Suspect]
     Dosage: 30 MG, EACH EVENING
  4. ZYPREXA [Suspect]
     Dosage: 40 MG, EACH EVENING
     Dates: end: 20080801
  5. CYMBALTA [Suspect]
     Indication: BIPOLAR I DISORDER
     Dosage: 60 MG, DAILY (1/D)
     Dates: start: 20080303
  6. DEPAKOTE [Concomitant]
     Indication: AFFECTIVE DISORDER
     Dosage: 100 MG, 2/D
  7. ATIVAN [Concomitant]
     Indication: ANXIETY
     Dosage: 1 MG, 2/D
  8. SEROQUEL [Concomitant]
     Indication: PSYCHOTIC DISORDER
     Dosage: 100 MG, EACH EVENING
  9. PRINIVIL [Concomitant]
     Dosage: 5 MG, DAILY (1/D)
  10. JANUVIA [Concomitant]
     Dosage: 25 MG, DAILY (1/D)
  11. GLUCOPHAG [Concomitant]
     Dosage: 500 MG, 2/D
  12. SENNA LAX [Concomitant]
     Indication: CONSTIPATION
     Dosage: 2 D/F, DAILY (1/D)

REACTIONS (6)
  - ASPIRATION [None]
  - DYSPHAGIA [None]
  - FALL [None]
  - GAIT DISTURBANCE [None]
  - OESOPHAGEAL OEDEMA [None]
  - OVERDOSE [None]
